FAERS Safety Report 12851927 (Version 2)
Quarter: 2017Q3

REPORT INFORMATION
  Report Type: Spontaneous
  Country: PT (occurrence: PT)
  Receive Date: 20161017
  Receipt Date: 20170821
  Transmission Date: 20171127
  Serious: Yes (Other)
  Sender: FDA-Public Use
  Company Number: PT-WEST-WARD PHARMACEUTICALS CORP.-PT-H14001-16-02153

PATIENT
  Age: 45 Year
  Sex: Male

DRUGS (2)
  1. VANCOMYCIN [Suspect]
     Active Substance: VANCOMYCIN
     Indication: IMPLANT SITE INFECTION
     Route: 065
  2. VANCOMYCIN [Suspect]
     Active Substance: VANCOMYCIN
     Indication: STAPHYLOCOCCAL INFECTION

REACTIONS (6)
  - Rash generalised [Unknown]
  - Staphylococcal infection [Recovered/Resolved]
  - Thrombocytopenia [Unknown]
  - Pruritus [Unknown]
  - Hypersensitivity [Unknown]
  - Leukopenia [Unknown]
